FAERS Safety Report 24174974 (Version 3)
Quarter: 2025Q1

REPORT INFORMATION
  Report Type: Spontaneous
  Country: GB (occurrence: GB)
  Receive Date: 20240805
  Receipt Date: 20250128
  Transmission Date: 20250408
  Serious: Yes (Hospitalization, Other)
  Sender: MYLAN
  Company Number: GB-MYLANLABS-2024M1070137

PATIENT
  Sex: Male

DRUGS (7)
  1. CLOZARIL [Suspect]
     Active Substance: CLOZAPINE
     Indication: Schizophrenia
     Route: 048
     Dates: start: 20120117
  2. CLOZARIL [Suspect]
     Active Substance: CLOZAPINE
     Route: 048
  3. CLOZARIL [Suspect]
     Active Substance: CLOZAPINE
     Route: 048
     Dates: start: 20240822, end: 20250108
  4. CLOZARIL [Suspect]
     Active Substance: CLOZAPINE
     Route: 048
     Dates: start: 20250114
  5. CLOZARIL [Suspect]
     Active Substance: CLOZAPINE
     Dosage: 100 MILLIGRAM, QD (PER DAY)
     Route: 048
     Dates: start: 202501
  6. OLANZAPINE [Concomitant]
     Active Substance: OLANZAPINE
     Indication: Psychotic disorder
     Route: 065
     Dates: start: 202501
  7. OLANZAPINE [Concomitant]
     Active Substance: OLANZAPINE
     Route: 065
     Dates: start: 202501

REACTIONS (7)
  - Neuroleptic malignant syndrome [Recovered/Resolved]
  - Psychotic symptom [Unknown]
  - Hallucination, auditory [Unknown]
  - Poor quality sleep [Unknown]
  - Confusional state [Unknown]
  - Therapy interrupted [Unknown]
  - Intentional product misuse [Unknown]

NARRATIVE: CASE EVENT DATE: 20250101
